FAERS Safety Report 8222647-7 (Version None)
Quarter: 2012Q1

REPORT INFORMATION
  Report Type: 
  Country: None (occurrence: None)
  Receive Date: 20120320
  Receipt Date: 20120313
  Transmission Date: 20120608
  Serious: Yes (Other)
  Sender: FDA-Public Use
  Company Number: US-SHIONOGI, INC-2012000112

PATIENT

DRUGS (4)
  1. FOCALIN [Concomitant]
     Dosage: 5 MG, UNK
  2. KAPVAY [Suspect]
     Dosage: 0.3 MG DAILY
     Dates: start: 20120220, end: 20120312
  3. RISPERDAL [Concomitant]
     Dosage: 0.5 MG, UNK
  4. KAPVAY [Suspect]
     Dosage: 0.2 MG, DAILY

REACTIONS (5)
  - URINARY INCONTINENCE [None]
  - FATIGUE [None]
  - SOMNOLENCE [None]
  - ABDOMINAL DISCOMFORT [None]
  - CHEST DISCOMFORT [None]
